FAERS Safety Report 14336345 (Version 2)
Quarter: 2018Q3

REPORT INFORMATION
  Report Type: Spontaneous
  Country: FR (occurrence: FR)
  Receive Date: 20171229
  Receipt Date: 20180713
  Transmission Date: 20181010
  Serious: Yes (Hospitalization)
  Sender: FDA-Public Use
  Company Number: FR-AUROBINDO-AUR-APL-2017-47550

PATIENT
  Age: 83 Year
  Sex: Male
  Weight: 77.9 kg

DRUGS (20)
  1. PANTOPRAZOL ARROW 40 MG  POWDER FOR SOLUTION FOR INJECTION [Suspect]
     Active Substance: PANTOPRAZOLE SODIUM
     Indication: GASTROINTESTINAL HAEMORRHAGE
     Dosage: 200 MG, DAILY
     Route: 042
     Dates: start: 20170307, end: 20170310
  2. LERCAN [Concomitant]
     Active Substance: LERCANIDIPINE
     Dosage: ()
     Route: 048
  3. LANTUS [Concomitant]
     Active Substance: INSULIN GLARGINE
     Dosage: ()
     Route: 058
  4. VITAMINE B 12 MILLE DELAGRANGE, SOLUTION BUVABLE [Suspect]
     Active Substance: CYANOCOBALAMIN
     Indication: ANAEMIA VITAMIN B12 DEFICIENCY
     Dosage: 1 DF, UNK
     Route: 048
     Dates: start: 20170311, end: 20170319
  5. LERCAN [Concomitant]
     Active Substance: LERCANIDIPINE
     Indication: PRODUCT USED FOR UNKNOWN INDICATION
     Dosage: ()
     Route: 048
  6. LASILIX                            /00032601/ [Suspect]
     Active Substance: FUROSEMIDE
     Indication: OEDEMA PERIPHERAL
     Dosage: 40 MG, DAILY
     Route: 048
     Dates: start: 20170306, end: 20170406
  7. ELIQUIS [Concomitant]
     Active Substance: APIXABAN
     Indication: PRODUCT USED FOR UNKNOWN INDICATION
     Dosage: ()
     Route: 048
  8. METFORMINE                         /00082702/ [Concomitant]
     Indication: PRODUCT USED FOR UNKNOWN INDICATION
     Dosage: ()
     Route: 048
  9. METFORMINE                         /00082702/ [Concomitant]
     Dosage: ()
     Route: 048
  10. LANTUS [Concomitant]
     Active Substance: INSULIN GLARGINE
     Indication: PRODUCT USED FOR UNKNOWN INDICATION
     Dosage: ()
     Route: 058
  11. SPECIAFOLDINE 5 MG, COMPRIM? [Suspect]
     Active Substance: FOLIC ACID
     Indication: ANAEMIA MACROCYTIC
     Dosage: 5 MG, DAILY
     Route: 048
     Dates: start: 20170313, end: 20170406
  12. LERCAN [Concomitant]
     Active Substance: LERCANIDIPINE
     Dosage: ()
     Route: 048
  13. ELIQUIS [Concomitant]
     Active Substance: APIXABAN
     Dosage: ()
     Route: 048
  14. METFORMINE                         /00082702/ [Concomitant]
     Dosage: ()
     Route: 048
  15. CYANOCOBALAMIN, THIAMINE, PYRIDOXINE HYDROCHLORIDE [Suspect]
     Active Substance: CYANOCOBALAMIN\PYRIDOXINE\THIAMINE
     Indication: ANAEMIA VITAMIN B12 DEFICIENCY
     Dosage: 1 DOSAGE FORM, EVERY WEEK
     Route: 048
     Dates: start: 20170320, end: 20170406
  16. DIFFU K [Concomitant]
     Active Substance: POTASSIUM CHLORIDE
     Indication: PRODUCT USED FOR UNKNOWN INDICATION
     Dosage: ()
     Route: 048
  17. PANTOPRAZOLE MYLAN [Suspect]
     Active Substance: PANTOPRAZOLE SODIUM
     Indication: GASTROINTESTINAL HAEMORRHAGE
     Dosage: 80 MILLIGRAM, ONCE A DAY
     Route: 048
     Dates: start: 20170310, end: 20170406
  18. CIPROFLOXACIN HYDROCHLORIDE ARROW FILM?COATED TABLET 500MG [Suspect]
     Active Substance: CIPROFLOXACIN HYDROCHLORIDE
     Indication: URINARY TRACT INFECTION
     Dosage: 1000 MG, DAILY
     Route: 048
     Dates: start: 20170320, end: 20170406
  19. ELIQUIS [Concomitant]
     Active Substance: APIXABAN
     Dosage: ()
     Route: 048
  20. LANTUS [Concomitant]
     Active Substance: INSULIN GLARGINE
     Dosage: ()
     Route: 058

REACTIONS (3)
  - Rash maculo-papular [Recovered/Resolved]
  - Eosinophilia [Recovered/Resolved]
  - Herpes simplex [Recovered/Resolved]

NARRATIVE: CASE EVENT DATE: 20170404
